FAERS Safety Report 15927966 (Version 2)
Quarter: 2019Q1

REPORT INFORMATION
  Report Type: Spontaneous
  Country: US (occurrence: US)
  Receive Date: 20190205
  Receipt Date: 20190219
  Transmission Date: 20190417
  Serious: No
  Sender: FDA-Public Use
  Company Number: US-ALLERGAN-1856367US

PATIENT
  Sex: Female
  Weight: 47.62 kg

DRUGS (1)
  1. BOTOX COSMETIC [Suspect]
     Active Substance: ONABOTULINUMTOXINA
     Indication: PRODUCT USED FOR UNKNOWN INDICATION
     Dosage: UNK UNK, SINGLE
     Route: 030

REACTIONS (5)
  - Feeling abnormal [Recovered/Resolved]
  - Claustrophobia [Unknown]
  - Therapeutic response delayed [Unknown]
  - Musculoskeletal stiffness [Recovered/Resolved]
  - Eyelid ptosis [Recovered/Resolved]
